FAERS Safety Report 17902972 (Version 3)
Quarter: 2020Q3

REPORT INFORMATION
  Report Type: Spontaneous
  Country: PT (occurrence: PT)
  Receive Date: 20200616
  Receipt Date: 20200722
  Transmission Date: 20201104
  Serious: No
  Sender: FDA-Public Use
  Company Number: PT-ASTRAZENECA-2020SE75986

PATIENT
  Age: 68 Year
  Sex: Female

DRUGS (19)
  1. SIMVASTATIN. [Suspect]
     Active Substance: SIMVASTATIN
     Indication: PRODUCT USED FOR UNKNOWN INDICATION
     Route: 065
  2. ALFUZOSIN [Suspect]
     Active Substance: ALFUZOSIN
     Indication: PRODUCT USED FOR UNKNOWN INDICATION
     Route: 065
  3. CHLORDIAZEPOXIDE. [Suspect]
     Active Substance: CHLORDIAZEPOXIDE
     Indication: PRODUCT USED FOR UNKNOWN INDICATION
     Route: 065
  4. ETORICOXIB. [Suspect]
     Active Substance: ETORICOXIB
     Indication: PRODUCT USED FOR UNKNOWN INDICATION
     Route: 065
  5. CITICOLINE [Suspect]
     Active Substance: CITICOLINE
     Indication: PRODUCT USED FOR UNKNOWN INDICATION
     Route: 065
  6. DEFLAZACORT [Suspect]
     Active Substance: DEFLAZACORT
     Indication: PRODUCT USED FOR UNKNOWN INDICATION
     Route: 065
  7. CELECOXIB. [Suspect]
     Active Substance: CELECOXIB
     Indication: PRODUCT USED FOR UNKNOWN INDICATION
     Route: 065
  8. GLUCOSAMINE [Suspect]
     Active Substance: GLUCOSAMINE
     Indication: PRODUCT USED FOR UNKNOWN INDICATION
     Route: 065
  9. BETAHISTINE [Suspect]
     Active Substance: BETAHISTINE
     Indication: PRODUCT USED FOR UNKNOWN INDICATION
     Route: 065
  10. CLIDINIUM BROMIDE [Suspect]
     Active Substance: CLIDINIUM BROMIDE
     Indication: PRODUCT USED FOR UNKNOWN INDICATION
     Route: 065
  11. PAROXETINE. [Suspect]
     Active Substance: PAROXETINE
     Indication: PRODUCT USED FOR UNKNOWN INDICATION
     Route: 065
  12. OTILONIUM BROMIDE [Suspect]
     Active Substance: OTILONIUM BROMIDE
     Indication: PRODUCT USED FOR UNKNOWN INDICATION
     Route: 065
  13. TRIMETAZIDINE [Suspect]
     Active Substance: TRIMETAZIDINE
     Indication: PRODUCT USED FOR UNKNOWN INDICATION
     Route: 065
  14. PROPANOLOL [Suspect]
     Active Substance: PROPRANOLOL HYDROCHLORIDE
     Indication: PRODUCT USED FOR UNKNOWN INDICATION
     Route: 065
  15. OMEPRAZOLE. [Suspect]
     Active Substance: OMEPRAZOLE
     Indication: PRODUCT USED FOR UNKNOWN INDICATION
     Route: 048
  16. TRAZODONE [Suspect]
     Active Substance: TRAZODONE HYDROCHLORIDE
     Indication: PRODUCT USED FOR UNKNOWN INDICATION
     Route: 065
  17. ALPRAZOLAM. [Suspect]
     Active Substance: ALPRAZOLAM
     Indication: PRODUCT USED FOR UNKNOWN INDICATION
     Route: 065
  18. TRIHEXYPHENIDYL [Suspect]
     Active Substance: TRIHEXYPHENIDYL
     Indication: PRODUCT USED FOR UNKNOWN INDICATION
     Route: 065
  19. ACECLOFENAC [Suspect]
     Active Substance: ACECLOFENAC
     Indication: PRODUCT USED FOR UNKNOWN INDICATION
     Route: 065

REACTIONS (1)
  - No adverse event [Unknown]
